FAERS Safety Report 24795207 (Version 2)
Quarter: 2025Q3

REPORT INFORMATION
  Report Type: Spontaneous
  Country: US (occurrence: None)
  Receive Date: 20241231
  Receipt Date: 20250802
  Transmission Date: 20251020
  Serious: Yes (Other)
  Sender: ALEXION PHARMACEUTICALS
  Company Number: US-ASTRAZENECA-202412USA023952US

PATIENT
  Sex: Male

DRUGS (2)
  1. PULMICORT TURBUHALER [Suspect]
     Active Substance: BUDESONIDE
     Route: 065
  2. VELSIPITY [Concomitant]
     Active Substance: ETRASIMOD ARGININE

REACTIONS (3)
  - Osteogenesis imperfecta [Unknown]
  - Insomnia [Unknown]
  - Attention deficit hyperactivity disorder [Unknown]
